FAERS Safety Report 16337665 (Version 4)
Quarter: 2019Q3

REPORT INFORMATION
  Report Type: Report from Study
  Country: CO (occurrence: CO)
  Receive Date: 20190521
  Receipt Date: 20190716
  Transmission Date: 20191004
  Serious: Yes (Hospitalization)
  Sender: FDA-Public Use
  Company Number: PHHY2017CO189398

PATIENT
  Age: 49 Year
  Sex: Female
  Weight: 55 kg

DRUGS (6)
  1. AFINITOR [Suspect]
     Active Substance: EVEROLIMUS
     Dosage: 10 MG, QD
     Route: 048
     Dates: start: 201901
  2. EXEMESTANE. [Suspect]
     Active Substance: EXEMESTANE
     Indication: PRODUCT USED FOR UNKNOWN INDICATION
     Dosage: UNK UNK, QD (AT NIGHT)
     Route: 065
  3. AFINITOR [Suspect]
     Active Substance: EVEROLIMUS
     Dosage: 10 MG, QD
     Route: 048
     Dates: start: 20180801, end: 2018
  4. ACETAMINOPHEN. [Concomitant]
     Active Substance: ACETAMINOPHEN
     Indication: PAIN
     Dosage: UNK
     Route: 065
  5. AFINITOR [Suspect]
     Active Substance: EVEROLIMUS
     Indication: BREAST CANCER
     Dosage: 10 MG, QD
     Route: 048
     Dates: start: 20170801
  6. TRAVOPROST. [Concomitant]
     Active Substance: TRAVOPROST
     Indication: PRODUCT USED FOR UNKNOWN INDICATION
     Route: 065

REACTIONS (26)
  - Terminal state [Not Recovered/Not Resolved]
  - Gait inability [Unknown]
  - General physical health deterioration [Not Recovered/Not Resolved]
  - Malaise [Unknown]
  - Feeling abnormal [Unknown]
  - Insomnia [Unknown]
  - Seizure [Unknown]
  - Vomiting [Unknown]
  - Pyrexia [Unknown]
  - Osteoporosis [Unknown]
  - Memory impairment [Unknown]
  - Speech disorder [Unknown]
  - Joint injury [Unknown]
  - Dizziness [Unknown]
  - Acne [Unknown]
  - Brain neoplasm [Unknown]
  - Eating disorder [Unknown]
  - Weight decreased [Unknown]
  - Dry skin [Unknown]
  - Headache [Unknown]
  - Nausea [Unknown]
  - Fluid retention [Unknown]
  - Drug intolerance [Unknown]
  - CSF volume increased [Unknown]
  - Boredom [Unknown]
  - Hypersensitivity [Unknown]

NARRATIVE: CASE EVENT DATE: 201808
